FAERS Safety Report 5949448-4 (Version None)
Quarter: 2008Q4

REPORT INFORMATION
  Report Type: 
  Country: None (occurrence: None)
  Receive Date: 20081112
  Receipt Date: 20081103
  Transmission Date: 20090506
  Serious: Yes (Life-Threatening, Hospitalization)
  Sender: FDA-Public Use
  Company Number: PHHY2008DE27040

PATIENT
  Sex: Male
  Weight: 104 kg

DRUGS (6)
  1. VOLTAREN [Suspect]
     Indication: BACK PAIN
     Dosage: 75 MG/DAY
     Route: 048
     Dates: start: 20080201, end: 20080212
  2. ACETAMINOPHEN [Suspect]
     Indication: BACK PAIN
     Dosage: 1 OR 2 TABLETS AT 500 MG DAILY
     Route: 048
     Dates: start: 20080215, end: 20080222
  3. ESOMEPRAZOLE MAGNESIUM [Concomitant]
     Dosage: 20 MG UNK
     Route: 048
     Dates: start: 20070601, end: 20080221
  4. EUTHYROX [Concomitant]
     Indication: HYPOTHYROIDISM
     Dosage: 100 UG DAILY ; (1.5 TABLET/DAY)
     Route: 048
     Dates: start: 19900101, end: 20080221
  5. LISINOPRIL ^RATIOPHARM^ [Concomitant]
     Indication: HYPERTENSION
     Dosage: (10/12.5) MG/DAY ; 1 TABLET/DAY
     Route: 048
     Dates: start: 20060101, end: 20080221
  6. LISINOPRIL [Concomitant]
     Indication: HYPERTENSION
     Dosage: 10 MG/DAY
     Route: 048
     Dates: start: 20040101, end: 20080221

REACTIONS (3)
  - FISTULA [None]
  - PANCREATIC PSEUDOCYST [None]
  - PANCREATITIS ACUTE [None]
